FAERS Safety Report 7596584-5 (Version None)
Quarter: 2011Q3

REPORT INFORMATION
  Report Type: 
  Country: None (occurrence: None)
  Receive Date: 20110708
  Receipt Date: 20110628
  Transmission Date: 20111222
  Serious: Yes (Death, Life-Threatening, Hospitalization)
  Sender: FDA-Public Use
  Company Number: JP-CELGENEUS-087-21880-11060257

PATIENT
  Sex: Female

DRUGS (19)
  1. DEXAMETHASONE [Concomitant]
     Indication: MULTIPLE MYELOMA
     Dosage: 3.3 MILLIGRAM
     Route: 041
     Dates: start: 20110602, end: 20110604
  2. OMEPRAZOLE [Concomitant]
     Indication: PROPHYLAXIS
     Dosage: 20 MILLIGRAM
     Route: 048
     Dates: start: 20110314, end: 20110522
  3. LORFENAMIN [Concomitant]
     Dosage: 180 MILLIGRAM
     Route: 048
     Dates: start: 20110426, end: 20110522
  4. MAGMITT [Concomitant]
     Indication: PROPHYLAXIS
     Dosage: 1980 MILLIGRAM
     Route: 048
     Dates: start: 20110314, end: 20110411
  5. REVLIMID [Suspect]
     Dosage: 25 MILLIGRAM
     Route: 048
     Dates: start: 20110510, end: 20110522
  6. VALTREX [Concomitant]
     Indication: PROPHYLAXIS
     Dosage: 500 MILLIGRAM
     Route: 048
     Dates: start: 20110314, end: 20110522
  7. ITRACONAZOLE [Concomitant]
     Indication: PROPHYLAXIS
     Dosage: 20 MILLILITER
     Route: 048
     Dates: start: 20110314, end: 20110411
  8. REVLIMID [Suspect]
     Indication: MULTIPLE MYELOMA
     Dosage: 10 MILLIGRAM
     Route: 048
     Dates: start: 20110314, end: 20110403
  9. REVLIMID [Suspect]
     Indication: REFRACTORY CANCER
     Dosage: 15 MILLIGRAM
     Route: 048
     Dates: start: 20110412, end: 20110418
  10. FENTANYL [Concomitant]
     Dosage: 2.1 MILLIGRAM
     Route: 062
     Dates: start: 20110314, end: 20110601
  11. DEXAMETHASONE [Suspect]
     Indication: MULTIPLE MYELOMA
     Dosage: 8 MILLIGRAM
     Route: 048
     Dates: start: 20110415, end: 20110522
  12. DEXAMETHASONE [Suspect]
     Indication: REFRACTORY CANCER
     Dosage: 8 MILLIGRAM
     Route: 048
     Dates: start: 20110525, end: 20110601
  13. DEXAMETHASONE [Concomitant]
     Indication: REFRACTORY CANCER
     Dosage: 1.65 MILLIGRAM
     Route: 041
     Dates: start: 20110605, end: 20110605
  14. DAIPHEN [Concomitant]
     Indication: PROPHYLAXIS
     Dosage: 3T
     Route: 048
     Dates: start: 20110314, end: 20110411
  15. ALLORIN [Concomitant]
     Indication: PROPHYLAXIS
     Dosage: 300 MILLIGRAM
     Route: 048
     Dates: start: 20110314, end: 20110417
  16. BIO-THREE [Concomitant]
     Indication: PROPHYLAXIS
     Dosage: 6T
     Route: 048
     Dates: start: 20110314, end: 20110522
  17. KETOPROFEN [Concomitant]
     Indication: MULTIPLE MYELOMA
     Route: 062
     Dates: start: 20110412, end: 20110522
  18. REVLIMID [Suspect]
     Dosage: 25 MILLIGRAM
     Route: 048
     Dates: start: 20110419, end: 20110502
  19. DAIPHEN [Concomitant]
     Dosage: 2T
     Route: 048
     Dates: start: 20110412, end: 20110522

REACTIONS (5)
  - LARGE INTESTINE PERFORATION [None]
  - HEPATIC FAILURE [None]
  - SEPSIS [None]
  - DISSEMINATED INTRAVASCULAR COAGULATION [None]
  - PLATELET COUNT DECREASED [None]
